FAERS Safety Report 9916005 (Version 1)
Quarter: 2014Q1

REPORT INFORMATION
  Report Type: Spontaneous
  Country: US (occurrence: None)
  Receive Date: 20140220
  Receipt Date: 20140220
  Transmission Date: 20141002
  Serious: Yes (Other)
  Sender: FDA-Public Use
  Company Number: None

PATIENT
  Age: 64 Year
  Sex: Female
  Weight: 118 kg

DRUGS (9)
  1. ALFA 2 INTERFERON 2B (INTRON-A) [Suspect]
  2. IBU [Concomitant]
  3. CELEXA [Concomitant]
  4. DEXILANT [Concomitant]
  5. GABAPENTIN [Concomitant]
  6. LORSARTIN/HCTZ [Concomitant]
  7. PRAVASTATIN [Concomitant]
  8. PROCHLORPERAZINE [Concomitant]
  9. ZOFRAN [Concomitant]

REACTIONS (2)
  - Arthralgia [None]
  - Fatigue [None]
